FAERS Safety Report 5619951-5 (Version None)
Quarter: 2008Q1

REPORT INFORMATION
  Report Type: 
  Country: None (occurrence: None)
  Receive Date: 20080208
  Receipt Date: 20080204
  Transmission Date: 20080703
  Serious: Yes (Hospitalization)
  Sender: FDA-Public Use
  Company Number: CA-BRISTOL-MYERS SQUIBB COMPANY-14067839

PATIENT
  Sex: Female

DRUGS (2)
  1. CEFPROZIL [Suspect]
     Indication: SINUSITIS
     Route: 048
     Dates: start: 20080129, end: 20080201
  2. ADVIL [Interacting]
     Indication: SINUSITIS
     Dosage: ADMINISTERED AS NEEDED
     Route: 048
     Dates: start: 20080129, end: 20080201

REACTIONS (6)
  - BURNING SENSATION [None]
  - COUGH [None]
  - DRUG INTERACTION [None]
  - PAIN IN EXTREMITY [None]
  - PARAESTHESIA [None]
  - SKIN DISCOLOURATION [None]
